FAERS Safety Report 8793096 (Version 2)
Quarter: 2012Q4

REPORT INFORMATION
  Report Type: 
  Country: US (occurrence: US)
  Receive Date: 20120918
  Receipt Date: 20121025
  Transmission Date: 20130627
  Serious: Yes (Death, Other)
  Sender: FDA-Public Use
  Company Number: US-ROCHE-1123425

PATIENT
  Sex: Female

DRUGS (3)
  1. AVASTIN [Suspect]
     Indication: NEOPLASM MALIGNANT
     Route: 042
     Dates: start: 20090513, end: 20090603
  2. AVASTIN [Suspect]
     Indication: OVARIAN CANCER
  3. AVASTIN [Suspect]
     Indication: ADENOCARCINOMA

REACTIONS (2)
  - Neoplasm malignant [Fatal]
  - Disease progression [Unknown]
